FAERS Safety Report 4311693-1 (Version None)
Quarter: 2004Q1

REPORT INFORMATION
  Report Type: 
  Country: None (occurrence: None)
  Receive Date: 20040302
  Receipt Date: 20031210
  Transmission Date: 20041129
  Serious: No
  Sender: FDA-Public Use
  Company Number: 200330040BWH

PATIENT
  Age: 61 Year
  Sex: Male

DRUGS (4)
  1. LEVITRA [Suspect]
     Indication: ERECTILE DYSFUNCTION
     Dosage: 10 MG, TOTAL DAILY ORAL
     Route: 048
     Dates: start: 20031201
  2. ATENOLOL [Concomitant]
  3. ZOCOR [Concomitant]
  4. K-DUR 10 [Concomitant]

REACTIONS (1)
  - ERECTILE DYSFUNCTION [None]
